FAERS Safety Report 24242948 (Version 1)
Quarter: 2024Q3

REPORT INFORMATION
  Report Type: Spontaneous
  Country: JP (occurrence: JP)
  Receive Date: 20240823
  Receipt Date: 20240823
  Transmission Date: 20241017
  Serious: Yes (Other)
  Sender: RANBAXY
  Company Number: JP-SUN PHARMACEUTICAL INDUSTRIES LTD-2024RR-463943

PATIENT
  Age: 8 Decade
  Sex: Female

DRUGS (7)
  1. PREGABALIN [Suspect]
     Active Substance: PREGABALIN
     Indication: Pain
     Dosage: UNK
     Route: 065
  2. PREGABALIN [Suspect]
     Active Substance: PREGABALIN
     Indication: Musculoskeletal stiffness
  3. CLONAZEPAM [Suspect]
     Active Substance: CLONAZEPAM
     Indication: Pain
     Dosage: 0.5 MILLIGRAM, DAILY
     Route: 065
  4. CLONAZEPAM [Suspect]
     Active Substance: CLONAZEPAM
     Indication: Musculoskeletal stiffness
  5. MIRTAZAPINE [Suspect]
     Active Substance: MIRTAZAPINE
     Indication: Depressed mood
     Dosage: 7.5 MILLIGRAM, DAILY
     Route: 065
  6. MIRTAZAPINE [Suspect]
     Active Substance: MIRTAZAPINE
     Indication: Insomnia
  7. LEVODOPA [Suspect]
     Active Substance: LEVODOPA
     Indication: Product used for unknown indication
     Dosage: 200 MILLIGRAM, DAILY
     Route: 065

REACTIONS (3)
  - Drug ineffective [Unknown]
  - Dizziness [Unknown]
  - Disease progression [Unknown]
